FAERS Safety Report 9221952 (Version 1)
Quarter: 2013Q1

REPORT INFORMATION
  Report Type: Spontaneous
  Country: US (occurrence: None)
  Receive Date: 20120910
  Receipt Date: 20120910
  Transmission Date: 20140127
  Serious: No
  Sender: FDA-Public Use
  Company Number: 1206USA01193

PATIENT
  Age: 82 Year
  Sex: Female

DRUGS (3)
  1. ZIOPTAN ( TAFLUPROST) EYE DROPS, SOLUTION [Suspect]
     Indication: GLAUCOMA
     Dosage: 2 UNK, HS, OPHTHALMIC
     Route: 047
     Dates: start: 20120601
  2. ALPHAGAN P ( BRIMONIDINE TARTRATE) [Concomitant]
  3. TIMOLOL ( TIMOLOL) [Concomitant]

REACTIONS (2)
  - Headache [None]
  - Ocular discomfort [None]
